FAERS Safety Report 5719524-X (Version None)
Quarter: 2008Q2

REPORT INFORMATION
  Report Type: 
  Country: None (occurrence: None)
  Receive Date: 20080425
  Receipt Date: 20080425
  Transmission Date: 20081010
  Serious: Yes (Other)
  Sender: FDA-Public Use
  Company Number: None

PATIENT
  Age: 36 Year
  Sex: Male

DRUGS (2)
  1. ZOSYN [Suspect]
     Indication: APPENDICITIS
     Dosage: 4.5 GM IV Q8HRS
     Route: 042
     Dates: start: 20080330, end: 20080423
  2. PECOCET [Concomitant]

REACTIONS (6)
  - EYE SWELLING [None]
  - INFUSION RELATED REACTION [None]
  - PARAESTHESIA [None]
  - RASH [None]
  - SWELLING FACE [None]
  - WHITE BLOOD CELL COUNT INCREASED [None]
